FAERS Safety Report 21989269 (Version 6)
Quarter: 2024Q1

REPORT INFORMATION
  Report Type: Report from Study
  Country: US (occurrence: US)
  Receive Date: 20230214
  Receipt Date: 20240214
  Transmission Date: 20240410
  Serious: Yes (Other)
  Sender: FDA-Public Use
  Company Number: US-002147023-NVSC2023US031916

PATIENT
  Sex: Male

DRUGS (1)
  1. COSENTYX [Suspect]
     Active Substance: SECUKINUMAB
     Indication: Psoriatic arthropathy
     Dosage: 150 MG, QMO
     Route: 058
     Dates: start: 20220621

REACTIONS (12)
  - Femur fracture [Unknown]
  - Hip fracture [Unknown]
  - Pain [Unknown]
  - Fatigue [Unknown]
  - Bone marrow oedema [Unknown]
  - Arthritis [Unknown]
  - Hypoacusis [Unknown]
  - Dysgraphia [Unknown]
  - Pain in extremity [Unknown]
  - Ankle fracture [Unknown]
  - Ligament rupture [Unknown]
  - Product dose omission issue [Unknown]
